FAERS Safety Report 17476302 (Version 1)
Quarter: 2020Q1

REPORT INFORMATION
  Report Type: Report from Study
  Country: GB (occurrence: GB)
  Receive Date: 20200228
  Receipt Date: 20200228
  Transmission Date: 20200409
  Serious: Yes (Hospitalization, Other)
  Sender: FDA-Public Use
  Company Number: GB-JNJFOC-20191014401

PATIENT

DRUGS (8)
  1. APRACLONIDINE [Concomitant]
     Active Substance: APRACLONIDINE HYDROCHLORIDE
     Dosage: 0.5%, 1 DROP TO LEFT EYE
     Route: 047
  2. LANSOPRAZOLE. [Concomitant]
     Active Substance: LANSOPRAZOLE
     Route: 048
  3. BIMATOPROST. [Concomitant]
     Active Substance: BIMATOPROST
     Dosage: 1 DROP DAILY TO LEFT EYE
     Route: 047
  4. DULOXETINE. [Concomitant]
     Active Substance: DULOXETINE
     Route: 048
  5. PREGABALIN. [Concomitant]
     Active Substance: PREGABALIN
     Route: 048
  6. USTEKINUMAB [Suspect]
     Active Substance: USTEKINUMAB
     Indication: CROHN^S DISEASE
     Route: 058
     Dates: start: 20171030
  7. THIAMINE. [Concomitant]
     Active Substance: THIAMINE
     Route: 048
  8. DORZOLAMIDE AND TIMOLOL [Concomitant]
     Active Substance: DORZOLAMIDE\TIMOLOL
     Dosage: 1 DROP DAILY TO LEFT EYE
     Route: 047

REACTIONS (2)
  - Ileostomy closure [Recovered/Resolved]
  - Clostridium difficile infection [Unknown]

NARRATIVE: CASE EVENT DATE: 201809
